FAERS Safety Report 6773984-4 (Version None)
Quarter: 2010Q2

REPORT INFORMATION
  Report Type: 
  Country: None (occurrence: None)
  Receive Date: 20100615
  Receipt Date: 20100615
  Transmission Date: 20101027
  Serious: Yes (Hospitalization)
  Sender: FDA-Public Use
  Company Number: None

PATIENT
  Sex: Male
  Weight: 113.5 kg

DRUGS (13)
  1. SIMVASTATIN [Suspect]
     Indication: HYPERLIPIDAEMIA
  2. CIPROFLOXACIN HCL [Suspect]
     Indication: PSEUDOMONAS INFECTION
  3. COUMADIN [Concomitant]
  4. FUROSEMIDE [Concomitant]
  5. ASPIRIN [Concomitant]
  6. COSOPT [Concomitant]
  7. SIMVASTATIN [Concomitant]
  8. AMLODIPINE [Concomitant]
  9. DIOVAN [Concomitant]
  10. INSULIN [Concomitant]
  11. INSULIN [Concomitant]
  12. METOLAZONE [Concomitant]
  13. VITAMIN D [Concomitant]

REACTIONS (16)
  - ASTHENIA [None]
  - BACK PAIN [None]
  - BALANCE DISORDER [None]
  - DERMATOMYOSITIS [None]
  - DIARRHOEA [None]
  - DRUG INTERACTION [None]
  - GAIT DISTURBANCE [None]
  - GROIN PAIN [None]
  - LOCALISED INFECTION [None]
  - MYOSITIS [None]
  - NECK PAIN [None]
  - OLIGURIA [None]
  - POLYMYOSITIS [None]
  - PSEUDOMONAS INFECTION [None]
  - RHABDOMYOLYSIS [None]
  - SKIN ULCER [None]
